FAERS Safety Report 24084132 (Version 1)
Quarter: 2024Q3

REPORT INFORMATION
  Report Type: Spontaneous
  Country: GB (occurrence: GB)
  Receive Date: 20240712
  Receipt Date: 20240712
  Transmission Date: 20241016
  Serious: Yes (Other)
  Sender: PFIZER
  Company Number: None

PATIENT
  Age: 27 Year
  Sex: Female
  Weight: 72 kg

DRUGS (1)
  1. DEPO-PROVERA [Suspect]
     Active Substance: MEDROXYPROGESTERONE ACETATE
     Indication: Contraception
     Dates: start: 20240604

REACTIONS (3)
  - Vertigo [Recovered/Resolved]
  - Pelvic pain [Recovering/Resolving]
  - Decidual cast [Unknown]

NARRATIVE: CASE EVENT DATE: 20240709
